FAERS Safety Report 8009370-9 (Version None)
Quarter: 2011Q4

REPORT INFORMATION
  Report Type: 
  Country: None (occurrence: None)
  Receive Date: 20111227
  Receipt Date: 20111216
  Transmission Date: 20120403
  Serious: Yes (Hospitalization)
  Sender: FDA-Public Use
  Company Number: FR-BRISTOL-MYERS SQUIBB COMPANY-16305930

PATIENT
  Age: 38 Year
  Sex: Female

DRUGS (5)
  1. CRESTOR [Concomitant]
     Indication: DYSLIPIDAEMIA
     Dosage: FILM-COATED TABLET
     Route: 048
     Dates: start: 20000101
  2. PERINDOPRIL ERBUMINE [Concomitant]
     Indication: ARTERIOSCLEROSIS OBLITERANS
     Dosage: FILM-COATED SCORED TABLET
     Route: 048
     Dates: start: 20050101
  3. ASPIRIN [Suspect]
     Indication: TRANSIENT ISCHAEMIC ATTACK
     Dosage: POWDER FOR ORAL SOLUTION IN SACHETS
     Route: 048
     Dates: start: 20000101, end: 20111010
  4. DEPAKENE [Concomitant]
     Indication: EPILEPSY
     Route: 048
     Dates: start: 20050101
  5. COUMADIN [Suspect]
     Indication: HEART VALVE REPLACEMENT
     Dosage: SCORED TABLET, 1 DF=1TABS
     Route: 048
     Dates: start: 20110201, end: 20111030

REACTIONS (2)
  - RED BLOOD CELL COUNT DECREASED [None]
  - HAEMATOMA [None]
